FAERS Safety Report 25376665 (Version 2)
Quarter: 2025Q3

REPORT INFORMATION
  Report Type: Spontaneous
  Country: CH (occurrence: CH)
  Receive Date: 20250530
  Receipt Date: 20250820
  Transmission Date: 20251020
  Serious: Yes (Other)
  Sender: ALEXION PHARMACEUTICALS
  Company Number: CH-ASTRAZENECA-202505GLO023692CH

PATIENT
  Age: 61 Year
  Sex: Female

DRUGS (1)
  1. ACALABRUTINIB [Suspect]
     Active Substance: ACALABRUTINIB
     Indication: Chronic lymphocytic leukaemia
     Route: 065

REACTIONS (10)
  - Capillary leak syndrome [Unknown]
  - Staphylococcal bacteraemia [Unknown]
  - Multiple organ dysfunction syndrome [Unknown]
  - Sepsis [Unknown]
  - Rash [Unknown]
  - Hypoalbuminaemia [Unknown]
  - Hypovolaemia [Unknown]
  - Lung infiltration [Unknown]
  - Oedema [Unknown]
  - Hypoperfusion [Unknown]
